FAERS Safety Report 16770366 (Version 2)
Quarter: 2019Q3

REPORT INFORMATION
  Report Type: Spontaneous
  Country: RO (occurrence: RO)
  Receive Date: 20190904
  Receipt Date: 20190923
  Transmission Date: 20191005
  Serious: Yes (Death, Other)
  Sender: FDA-Public Use
  Company Number: RO-SA-2019SA242382

PATIENT
  Age: 17 Month
  Sex: Female
  Weight: 8 kg

DRUGS (16)
  1. SOLU-MEDROL [Concomitant]
     Active Substance: METHYLPREDNISOLONE SODIUM SUCCINATE
     Dosage: 1-2 MG/KG, QD
     Route: 065
     Dates: start: 20190901
  2. MYOZYME [Suspect]
     Active Substance: ALGLUCOSIDASE ALFA
     Dosage: 3 DF, UNK
     Route: 065
     Dates: start: 20190727
  3. RITUXIMAB. [Suspect]
     Active Substance: RITUXIMAB
     Dosage: 12.5 MG/KG, UNK
     Route: 065
     Dates: start: 20190515
  4. ARNETINE [Concomitant]
     Dosage: UNK UNK, UNK
     Route: 065
     Dates: start: 20190727
  5. FUROSEMIDE. [Concomitant]
     Active Substance: FUROSEMIDE
     Dosage: UNK UNK, UNK
     Route: 065
     Dates: start: 20190727
  6. DESLORATADINE. [Concomitant]
     Active Substance: DESLORATADINE
     Dosage: 2.5 ML, UNK
     Route: 065
     Dates: start: 20190901
  7. BORTEZOMIB. [Concomitant]
     Active Substance: BORTEZOMIB
     Dosage: 1.3 MG/M2, UNK
     Dates: start: 20190517
  8. DEXAMETHASONE. [Concomitant]
     Active Substance: DEXAMETHASONE
     Dosage: UNK UNK, UNK
     Route: 065
     Dates: start: 20190727
  9. MYOZYME [Suspect]
     Active Substance: ALGLUCOSIDASE ALFA
     Dosage: 25 MG
     Route: 041
     Dates: start: 2019
  10. MYOZYME [Suspect]
     Active Substance: ALGLUCOSIDASE ALFA
     Dosage: 20 MG/KG, UNK
     Route: 041
     Dates: start: 20190807
  11. AERIUS [EBASTINE] [Concomitant]
     Active Substance: EBASTINE
     Dosage: UNK UNK, UNK
     Route: 065
     Dates: start: 20190727
  12. SPIRONOLACTONE. [Concomitant]
     Active Substance: SPIRONOLACTONE
     Dosage: UNK UNK, UNK
     Route: 065
     Dates: start: 20190727
  13. MYOZYME [Suspect]
     Active Substance: ALGLUCOSIDASE ALFA
     Indication: GLYCOGEN STORAGE DISEASE TYPE II
     Dosage: 20 MG/KG, QOW
     Route: 042
     Dates: start: 20180901, end: 20190807
  14. METHOTREXATE. [Suspect]
     Active Substance: METHOTREXATE
     Dosage: 0.4 MG/KG, UNK
     Route: 065
     Dates: start: 20190530
  15. CAPTOPRIL. [Concomitant]
     Active Substance: CAPTOPRIL
     Dosage: UNK UNK, UNK
     Route: 065
     Dates: start: 20190727
  16. RANITIDINE. [Concomitant]
     Active Substance: RANITIDINE
     Dosage: 2-3 MG/KG, QD
     Route: 065
     Dates: start: 20190901

REACTIONS (20)
  - Respiratory acidosis [Fatal]
  - Disease progression [Fatal]
  - Oxygen saturation decreased [Fatal]
  - Hyperthermia malignant [Fatal]
  - Peripheral coldness [Fatal]
  - Cardiac murmur [Fatal]
  - Heart rate increased [Fatal]
  - Blood immunoglobulin A decreased [Unknown]
  - Hypopnoea [Fatal]
  - Metabolic acidosis [Fatal]
  - Blood pressure increased [Fatal]
  - Hypogammaglobulinaemia [Unknown]
  - Hypotonia [Fatal]
  - Oedema peripheral [Unknown]
  - Antibody test positive [Recovered/Resolved]
  - Chronic respiratory failure [Fatal]
  - Pyrexia [Fatal]
  - Cardio-respiratory arrest [Fatal]
  - Cyanosis [Fatal]
  - Respiratory rate increased [Fatal]

NARRATIVE: CASE EVENT DATE: 2019
